FAERS Safety Report 4380339-9 (Version None)
Quarter: 2004Q2

REPORT INFORMATION
  Report Type: 
  Country: None (occurrence: None)
  Receive Date: 20040614
  Receipt Date: 20040602
  Transmission Date: 20050107
  Serious: Yes (Hospitalization, Other)
  Sender: FDA-Public Use
  Company Number: 2003121068

PATIENT
  Age: 64 Year
  Sex: Female
  Weight: 68.9 kg

DRUGS (7)
  1. ZITHROMAX [Suspect]
     Indication: PNEUMONIA PRIMARY ATYPICAL
     Dosage: 500 MG (2 IN 1 D) ORAL
     Route: 048
     Dates: start: 20030706, end: 20030708
  2. DOXORUBICIN HCL [Suspect]
     Indication: UTERINE CANCER
     Dates: start: 20010101
  3. ENALAPRIL MALEATE [Concomitant]
  4. DIGOXIN [Concomitant]
  5. NITROGLYCERIN [Concomitant]
  6. FUROSEMIDE [Concomitant]
  7. FUROSEMIDE [Concomitant]

REACTIONS (13)
  - CARDIOMYOPATHY [None]
  - DILATATION VENTRICULAR [None]
  - DYSPNOEA EXERTIONAL [None]
  - ELECTROCARDIOGRAM QT PROLONGED [None]
  - FACE OEDEMA [None]
  - HYPOKALAEMIA [None]
  - OEDEMA PERIPHERAL [None]
  - PNEUMONIA PRIMARY ATYPICAL [None]
  - TORSADE DE POINTES [None]
  - VENTRICULAR EXTRASYSTOLES [None]
  - VENTRICULAR HYPOKINESIA [None]
  - VENTRICULAR TACHYCARDIA [None]
  - WEIGHT DECREASED [None]
